FAERS Safety Report 14508855 (Version 1)
Quarter: 2018Q1

REPORT INFORMATION
  Report Type: Spontaneous
  Country: CA (occurrence: CA)
  Receive Date: 20180209
  Receipt Date: 20180209
  Transmission Date: 20180509
  Serious: Yes (Other)
  Sender: FDA-Public Use
  Company Number: CA-ROCHE-2063833

PATIENT
  Age: 12 Year
  Sex: Female

DRUGS (10)
  1. RITUXIMAB. [Suspect]
     Active Substance: RITUXIMAB
     Indication: POLYARTHRITIS
     Route: 042
     Dates: start: 201105, end: 201105
  2. ABATACEPT [Suspect]
     Active Substance: ABATACEPT
     Indication: POLYARTHRITIS
     Route: 065
  3. ADALIMUMAB [Suspect]
     Active Substance: ADALIMUMAB
     Indication: POLYARTHRITIS
     Route: 058
     Dates: start: 201105, end: 201406
  4. LEFLUNOMIDE. [Suspect]
     Active Substance: LEFLUNOMIDE
     Indication: POLYARTHRITIS
     Route: 065
  5. INFLIXIMAB [Suspect]
     Active Substance: INFLIXIMAB
     Indication: PRODUCT USED FOR UNKNOWN INDICATION
     Route: 065
     Dates: start: 201408, end: 201409
  6. ACTEMRA [Suspect]
     Active Substance: TOCILIZUMAB
     Indication: POLYARTHRITIS
     Route: 065
  7. SULFASALAZINE. [Suspect]
     Active Substance: SULFASALAZINE
     Indication: POLYARTHRITIS
     Route: 065
  8. PLAQUENIL [Suspect]
     Active Substance: HYDROXYCHLOROQUINE SULFATE
     Indication: POLYARTHRITIS
     Route: 065
  9. METHOTREXATE. [Suspect]
     Active Substance: METHOTREXATE
     Indication: POLYARTHRITIS
     Route: 058
     Dates: start: 20080918, end: 2013
  10. ETANERCEPT [Suspect]
     Active Substance: ETANERCEPT
     Indication: POLYARTHRITIS
     Route: 058
     Dates: start: 20090201, end: 20100902

REACTIONS (18)
  - Disability [Unknown]
  - Mean cell haemoglobin decreased [Unknown]
  - C-reactive protein increased [Unknown]
  - Vascular access complication [Unknown]
  - Mean platelet volume decreased [Unknown]
  - Red blood cell sedimentation rate [Unknown]
  - Infusion related reaction [Unknown]
  - Deformity [Unknown]
  - Pain [Unknown]
  - Joint effusion [Unknown]
  - Mean cell volume decreased [Unknown]
  - Arthritis [Unknown]
  - Joint destruction [Unknown]
  - Treatment failure [Unknown]
  - White blood cell count increased [Unknown]
  - Red cell distribution width decreased [Unknown]
  - Platelet count increased [Unknown]
  - Monocyte count increased [Unknown]
